FAERS Safety Report 12732064 (Version 1)
Quarter: 2016Q3

REPORT INFORMATION
  Report Type: Spontaneous
  Country: US (occurrence: US)
  Receive Date: 20160909
  Receipt Date: 20160909
  Transmission Date: 20161109
  Serious: Yes (Disabling)
  Sender: FDA-Public Use
  Company Number: None

PATIENT
  Age: 49 Year
  Sex: Male
  Weight: 124.2 kg

DRUGS (7)
  1. JARDIANCE [Suspect]
     Active Substance: EMPAGLIFLOZIN
     Indication: DIABETES MELLITUS
     Route: 048
  2. FISH OIL [Concomitant]
     Active Substance: FISH OIL
  3. LISENOPRIL [Concomitant]
     Active Substance: LISINOPRIL
  4. METPHORMIN [Concomitant]
  5. ASPIRIN. [Concomitant]
     Active Substance: ASPIRIN
  6. PRAVASTATIN. [Concomitant]
     Active Substance: PRAVASTATIN
  7. PRESTIQE [Concomitant]

REACTIONS (2)
  - Arthralgia [None]
  - Joint swelling [None]

NARRATIVE: CASE EVENT DATE: 20160831
